FAERS Safety Report 4619704-0 (Version None)
Quarter: 2005Q1

REPORT INFORMATION
  Report Type: 
  Country: None (occurrence: None)
  Receive Date: 20050317
  Receipt Date: 20050317
  Transmission Date: 20050727
  Serious: No
  Sender: FDA-Public Use
  Company Number: None

PATIENT
  Sex: Male
  Weight: 126.4 kg

DRUGS (5)
  1. VANCOMYCIN [Suspect]
     Indication: POSTOPERATIVE INFECTION
     Dosage: 1200 MG IV Q 12
     Route: 042
     Dates: start: 20050216, end: 20050314
  2. ASPIRIN [Concomitant]
  3. LORCET-HD [Concomitant]
  4. MULTI-VITAMIN [Concomitant]
  5. SYNTHROID [Concomitant]

REACTIONS (2)
  - DRUG LEVEL BELOW THERAPEUTIC [None]
  - NEUTROPENIA [None]
